FAERS Safety Report 24116389 (Version 1)
Quarter: 2024Q3

REPORT INFORMATION
  Report Type: Spontaneous
  Country: US (occurrence: US)
  Receive Date: 20240722
  Receipt Date: 20240722
  Transmission Date: 20241017
  Serious: No
  Sender: ASTELLAS
  Company Number: US-ASTELLAS-2024US001496

PATIENT
  Age: 47 Year
  Sex: Female

DRUGS (1)
  1. MYRBETRIQ [Suspect]
     Active Substance: MIRABEGRON
     Indication: Product used for unknown indication
     Route: 065
     Dates: start: 2023

REACTIONS (5)
  - Bowel movement irregularity [Unknown]
  - Thirst [Unknown]
  - Dry mouth [Unknown]
  - Dehydration [Unknown]
  - Constipation [Unknown]

NARRATIVE: CASE EVENT DATE: 20230101
